FAERS Safety Report 10914133 (Version 1)
Quarter: 2015Q1

REPORT INFORMATION
  Report Type: Spontaneous
  Country: US (occurrence: None)
  Receive Date: 20150310
  Receipt Date: 20150310
  Transmission Date: 20150721
  Serious: Yes (Hospitalization)
  Sender: FDA-Public Use
  Company Number: US-H14001-15-00304

PATIENT
  Age: 10 Year
  Sex: Male

DRUGS (2)
  1. CEFTRIAXONE. [Suspect]
     Active Substance: CEFTRIAXONE
     Indication: ARTHRITIS BACTERIAL
  2. VANCOMYCIN [Concomitant]
     Active Substance: VANCOMYCIN

REACTIONS (11)
  - Cholecystitis [None]
  - Cholelithiasis [None]
  - Joint effusion [None]
  - Abdominal pain [None]
  - Osteomyelitis [None]
  - Pyrexia [None]
  - Salmonella test positive [None]
  - Arthralgia [None]
  - White blood cell count decreased [None]
  - Platelet count decreased [None]
  - Wound secretion [None]
